FAERS Safety Report 18700513 (Version 1)
Quarter: 2021Q1

REPORT INFORMATION
  Report Type: Other
  Country: FR (occurrence: FR)
  Receive Date: 20210105
  Receipt Date: 20210105
  Transmission Date: 20210419
  Serious: Yes (Death, Congenital Anomaly)
  Sender: FDA-Public Use
  Company Number: FR-DEXPHARM-20201212

PATIENT
  Age: 0 Day
  Sex: Male

DRUGS (4)
  1. CYAMEMAZINE [Interacting]
     Active Substance: CYAMEMAZINE
     Route: 064
  2. VENLAFAXINE [Suspect]
     Active Substance: VENLAFAXINE HYDROCHLORIDE
     Route: 064
  3. CHLORPROMAZINE. [Interacting]
     Active Substance: CHLORPROMAZINE
     Route: 064
  4. VALPROATE [Interacting]
     Active Substance: VALPROIC ACID
     Route: 064

REACTIONS (2)
  - Drug interaction [Fatal]
  - Spina bifida [Fatal]

NARRATIVE: CASE EVENT DATE: 2007
